FAERS Safety Report 9949837 (Version 1)
Quarter: 2014Q1

REPORT INFORMATION
  Report Type: Spontaneous
  Country: US (occurrence: US)
  Receive Date: 20140304
  Receipt Date: 20140304
  Transmission Date: 20141002
  Serious: No
  Sender: FDA-Public Use
  Company Number: US-ABBVIE-13P-163-1070316-00

PATIENT
  Age: 62 Year
  Sex: Male
  Weight: 104.42 kg

DRUGS (5)
  1. HUMIRA [Suspect]
     Indication: PSORIASIS
     Dates: start: 20130327, end: 20130327
  2. COLCHICINE [Concomitant]
     Indication: GOUT
  3. HYDROXYZINE [Concomitant]
     Indication: PRURITUS
  4. SAW PALMETTO [Concomitant]
     Indication: PROSTATIC DISORDER
  5. ANDROGEL [Concomitant]
     Indication: BLOOD TESTOSTERONE DECREASED

REACTIONS (5)
  - Asthenia [Unknown]
  - Dizziness [Recovering/Resolving]
  - Nausea [Recovering/Resolving]
  - Fatigue [Unknown]
  - Somnolence [Recovering/Resolving]
